FAERS Safety Report 18222224 (Version 1)
Quarter: 2020Q3

REPORT INFORMATION
  Report Type: Spontaneous
  Country: US (occurrence: US)
  Receive Date: 20200902
  Receipt Date: 20200902
  Transmission Date: 20201103
  Serious: No
  Sender: FDA-Public Use
  Company Number: US-AMGEN-USASP2020139777

PATIENT
  Sex: Female

DRUGS (2)
  1. NEULASTA [Suspect]
     Active Substance: PEGFILGRASTIM
     Dosage: 6 MILLIGRAM
     Route: 065
     Dates: end: 20200819
  2. NEULASTA [Suspect]
     Active Substance: PEGFILGRASTIM
     Indication: BREAST CANCER
     Dosage: 6 MILLIGRAM
     Route: 065

REACTIONS (3)
  - Pain [Unknown]
  - Coccydynia [Unknown]
  - Arthralgia [Unknown]

NARRATIVE: CASE EVENT DATE: 20200824
